FAERS Safety Report 19570623 (Version 2)
Quarter: 2021Q3

REPORT INFORMATION
  Report Type: Spontaneous
  Country: US (occurrence: US)
  Receive Date: 20210715
  Receipt Date: 20210716
  Transmission Date: 20211014
  Serious: Yes (Other)
  Sender: FDA-Public Use
  Company Number: US-ALLERGAN-2125630US

PATIENT
  Sex: Female
  Weight: 106.58 kg

DRUGS (13)
  1. SAPHRIS [Concomitant]
     Active Substance: ASENAPINE MALEATE
     Indication: BIPOLAR DISORDER
  2. HUMIRA [Suspect]
     Active Substance: ADALIMUMAB
     Indication: HIDRADENITIS
     Dosage: 40 MG, Q WEEK
     Route: 058
     Dates: start: 2019
  3. CELEXA [Concomitant]
     Active Substance: CITALOPRAM HYDROBROMIDE
     Indication: DEPRESSION
  4. MODERNA COVID?19 VACCINE [Concomitant]
     Active Substance: CX-024414
     Indication: COVID-19 IMMUNISATION
     Dosage: UNK UNK, SINGLE
     Route: 030
     Dates: start: 20210315, end: 20210315
  5. COGENTIN [Concomitant]
     Active Substance: BENZTROPINE MESYLATE
     Indication: DYSPHAGIA
  6. KLONOPIN [Concomitant]
     Active Substance: CLONAZEPAM
     Indication: ANXIETY
  7. DAPSONE UNK [Suspect]
     Active Substance: DAPSONE
     Indication: HIDRADENITIS
     Dosage: UNK
  8. CLOZAPINE. [Concomitant]
     Active Substance: CLOZAPINE
     Indication: SCHIZOPHRENIA
  9. MODERNA COVID?19 VACCINE [Concomitant]
     Active Substance: CX-024414
     Dosage: UNK UNK, SINGLE
     Route: 030
     Dates: start: 20210213, end: 20210213
  10. PHENERGAN [Concomitant]
     Active Substance: PROMETHAZINE HYDROCHLORIDE
     Indication: NAUSEA
  11. IRON [Concomitant]
     Active Substance: IRON
  12. LIPITOR [Concomitant]
     Active Substance: ATORVASTATIN CALCIUM
     Indication: BLOOD CHOLESTEROL
  13. PROTONIX [OMEPRAZOLE] [Concomitant]
     Active Substance: OMEPRAZOLE
     Indication: IMPAIRED GASTRIC EMPTYING

REACTIONS (3)
  - Hidradenitis [Recovered/Resolved]
  - Off label use [Unknown]
  - Haemolytic anaemia [Not Recovered/Not Resolved]

NARRATIVE: CASE EVENT DATE: 2020
